FAERS Safety Report 25209823 (Version 3)
Quarter: 2025Q4

REPORT INFORMATION
  Report Type: Spontaneous
  Country: JP (occurrence: JP)
  Receive Date: 20250417
  Receipt Date: 20251121
  Transmission Date: 20260118
  Serious: No
  Sender: JAZZ
  Company Number: JP-JAZZ PHARMACEUTICALS-2025-JP-009756

PATIENT
  Age: 48 Year
  Sex: Male
  Weight: 55.3 kg

DRUGS (5)
  1. VYXEOS [Suspect]
     Active Substance: CYTARABINE\DAUNORUBICIN
     Indication: Acute myeloid leukaemia
     Dosage: 100 UNIT PER SQUARE METERS PER DAY
     Dates: start: 20241203, end: 20241203
  2. VYXEOS [Suspect]
     Active Substance: CYTARABINE\DAUNORUBICIN
     Dosage: UNK UNK, QD
     Dates: start: 20241205, end: 20241205
  3. VYXEOS [Suspect]
     Active Substance: CYTARABINE\DAUNORUBICIN
     Dosage: UNK UNK, QD
     Dates: start: 20241207, end: 20241207
  4. VYXEOS [Suspect]
     Active Substance: CYTARABINE\DAUNORUBICIN
     Dosage: 100 UNIT PER SQUARE METERS PER DAY
     Dates: start: 20241224, end: 20241226
  5. VYXEOS [Suspect]
     Active Substance: CYTARABINE\DAUNORUBICIN
     Dosage: 100 UNIT PER SQUARE METERS PER DAY
     Dates: start: 20241226, end: 20241226

REACTIONS (1)
  - No adverse event [Unknown]
